FAERS Safety Report 25473347 (Version 1)
Quarter: 2025Q2

REPORT INFORMATION
  Report Type: Spontaneous
  Country: CN (occurrence: CN)
  Receive Date: 20250624
  Receipt Date: 20250624
  Transmission Date: 20250716
  Serious: Yes (Hospitalization)
  Sender: PFIZER
  Company Number: CN-PFIZER INC-PV202500072543

PATIENT
  Age: 70 Year
  Sex: Female
  Weight: 78 kg

DRUGS (3)
  1. METHOTREXATE SODIUM [Suspect]
     Active Substance: METHOTREXATE SODIUM
     Indication: Diffuse large B-cell lymphoma
     Dosage: 6.3 G, 1X/DAY
     Dates: start: 20241211, end: 20241211
  2. ZUBERITAMAB [Suspect]
     Active Substance: ZUBERITAMAB
     Indication: Lymphoma
     Dosage: 500 MG, 1X/DAY
     Dates: start: 20241210, end: 20241210
  3. DEXAMETHASONE SODIUM PHOSPHATE [Suspect]
     Active Substance: DEXAMETHASONE SODIUM PHOSPHATE
     Indication: Lymphoma
     Dosage: 10 MG, 1X/DAY
     Route: 041
     Dates: start: 20241210, end: 20241210

REACTIONS (2)
  - Renal impairment [Recovering/Resolving]
  - Drug level increased [Recovering/Resolving]

NARRATIVE: CASE EVENT DATE: 20241212
